FAERS Safety Report 7352751-7 (Version None)
Quarter: 2011Q1

REPORT INFORMATION
  Report Type: 
  Country: None (occurrence: None)
  Receive Date: 20110315
  Receipt Date: 20110307
  Transmission Date: 20110831
  Serious: Yes (Hospitalization)
  Sender: FDA-Public Use
  Company Number: US-ELI_LILLY_AND_COMPANY-US201103002144

PATIENT
  Age: 15 Year
  Sex: Male

DRUGS (4)
  1. CYMBALTA [Suspect]
     Dosage: 60 MG, DAILY (1/D)
  2. CYMBALTA [Suspect]
     Dosage: 90 MG, DAILY (1/D)
  3. CYMBALTA [Suspect]
     Dosage: 120 MG, UNK
  4. CYMBALTA [Suspect]
     Indication: DEPRESSION
     Dosage: 30 MG, DAILY (1/D)

REACTIONS (2)
  - OFF LABEL USE [None]
  - STEVENS-JOHNSON SYNDROME [None]
